FAERS Safety Report 9703014 (Version 1)
Quarter: 2013Q4

REPORT INFORMATION
  Report Type: Spontaneous
  Country: CA (occurrence: CA)
  Receive Date: 20131122
  Receipt Date: 20131122
  Transmission Date: 20140711
  Serious: Yes (Death, Other)
  Sender: FDA-Public Use
  Company Number: CA-ASTRAZENECA-2013SE85091

PATIENT
  Age: 17 Year
  Sex: Male

DRUGS (11)
  1. SEROQUEL [Suspect]
     Indication: ANXIETY
     Route: 048
  2. SEROQUEL [Suspect]
     Indication: STRESS
     Route: 048
  3. SEROQUEL [Suspect]
     Indication: POST-TRAUMATIC STRESS DISORDER
     Route: 048
  4. SEROQUEL [Suspect]
     Indication: ANXIETY
     Route: 048
  5. SEROQUEL [Suspect]
     Indication: STRESS
     Route: 048
  6. SEROQUEL [Suspect]
     Indication: POST-TRAUMATIC STRESS DISORDER
     Route: 048
  7. MARIJUANA [Concomitant]
  8. ZOLOFT [Concomitant]
     Indication: ANXIETY
  9. ATIVAN [Concomitant]
     Indication: ILL-DEFINED DISORDER
  10. ZYPREXA [Concomitant]
  11. RISPERDAL [Concomitant]

REACTIONS (10)
  - Completed suicide [Fatal]
  - Drug intolerance [Unknown]
  - Suicidal behaviour [Unknown]
  - Fear [Unknown]
  - Anxiety [Unknown]
  - Insomnia [Unknown]
  - Nightmare [Unknown]
  - Dyspnoea [Unknown]
  - Drug dose omission [Unknown]
  - Intentional drug misuse [Unknown]
